FAERS Safety Report 16706824 (Version 1)
Quarter: 2019Q3

REPORT INFORMATION
  Report Type: Spontaneous
  Country: NL (occurrence: NL)
  Receive Date: 20190815
  Receipt Date: 20190815
  Transmission Date: 20191004
  Serious: Yes (Hospitalization)
  Sender: FDA-Public Use
  Company Number: NL-TEVA-2019-NL-1093034

PATIENT
  Age: 83 Year
  Sex: Male

DRUGS (1)
  1. CLINDAMYCINE CAPSULE, 300 MG (MILLIGRAM) [Suspect]
     Active Substance: CLINDAMYCIN
     Indication: ERYSIPELAS
     Dosage: 3X PER DAY 2, 600 MILLIGRAM
     Route: 065
     Dates: start: 20190714, end: 20190717

REACTIONS (4)
  - Lip swelling [Recovered/Resolved]
  - Hypersensitivity [Recovered/Resolved]
  - Swelling of eyelid [Recovered/Resolved]
  - Rash [Recovered/Resolved]

NARRATIVE: CASE EVENT DATE: 20190716
